FAERS Safety Report 6370906-5 (Version None)
Quarter: 2009Q3

REPORT INFORMATION
  Report Type: 
  Country: None (occurrence: None)
  Receive Date: 20090923
  Receipt Date: 20070501
  Transmission Date: 20100115
  Serious: Yes (Other)
  Sender: FDA-Public Use
  Company Number: US-ASTRAZENECA-2006UW22712

PATIENT
  Sex: Female
  Weight: 195.5 kg

DRUGS (12)
  1. SEROQUEL [Suspect]
     Indication: SLEEP DISORDER
     Dosage: 25-50 MG
     Route: 048
     Dates: start: 20050201
  2. PREDNISONE [Concomitant]
     Route: 048
  3. COUMADIN [Concomitant]
     Route: 048
  4. COREG [Concomitant]
     Dosage: 3.125-6.25 MG
     Route: 048
  5. CLONIDINE [Concomitant]
     Route: 048
  6. NORVASC [Concomitant]
     Route: 048
  7. ZOCOR [Concomitant]
     Route: 048
  8. LIPITOR [Concomitant]
     Route: 048
  9. LUNESTA [Concomitant]
     Dosage: 3-5 MG
     Route: 048
  10. NEURONTIN [Concomitant]
     Route: 048
  11. LOPRESSOR [Concomitant]
     Route: 048
  12. LEXAPRO [Concomitant]
     Route: 048

REACTIONS (2)
  - DIABETES MELLITUS [None]
  - PANCREATITIS [None]
